FAERS Safety Report 4317395-X (Version None)
Quarter: 2004Q1

REPORT INFORMATION
  Report Type: 
  Country: None (occurrence: None)
  Receive Date: 20040312
  Receipt Date: 20040304
  Transmission Date: 20041129
  Serious: Yes (Other)
  Sender: FDA-Public Use
  Company Number: 2004195111NO

PATIENT
  Age: 67 Year
  Sex: Female

DRUGS (10)
  1. ZYVOXID (LINEZOLID) TABLET [Suspect]
     Indication: ENDOCARDITIS
     Dosage: 600 MG, BID, ORAL
     Route: 048
     Dates: start: 20031010, end: 20031021
  2. VANCOMYCIN HYDROCHLORIDE [Concomitant]
  3. RISEDRONIC ACID (RISEDRONIC ACID) [Concomitant]
  4. WARFARIN SODIUM [Concomitant]
  5. PREDNISOLONE [Concomitant]
  6. ZOCOR [Concomitant]
  7. TRIATEC (RAMIPROL) [Concomitant]
  8. ZYLORIC [Concomitant]
  9. LANSOPRAZOLE [Concomitant]
  10. BUMETANIDE [Concomitant]

REACTIONS (3)
  - BLOOD DISORDER [None]
  - HAEMOGLOBIN DECREASED [None]
  - THROMBOCYTOPENIA [None]
